FAERS Safety Report 6810808-0 (Version None)
Quarter: 2010Q2

REPORT INFORMATION
  Report Type: 
  Country: None (occurrence: None)
  Receive Date: 20100630
  Receipt Date: 20080422
  Transmission Date: 20101027
  Serious: No
  Sender: FDA-Public Use
  Company Number: US-PFIZER INC-2008036241

PATIENT
  Age: 53 Year
  Sex: Female
  Weight: 81.818 kg

DRUGS (2)
  1. ESTRING [Suspect]
     Dates: start: 20080417, end: 20080418
  2. SYNTHROID [Concomitant]
     Indication: HYPOTHYROIDISM

REACTIONS (1)
  - APPLICATION SITE DISCOMFORT [None]
